FAERS Safety Report 8197221-1 (Version None)
Quarter: 2012Q1

REPORT INFORMATION
  Report Type: 
  Country: None (occurrence: None)
  Receive Date: 20120309
  Receipt Date: 20120301
  Transmission Date: 20120608
  Serious: Yes (Disabling, Other)
  Sender: FDA-Public Use
  Company Number: DK-GE HEALTHCARE MEDICAL DIAGNOSTICS-OSCN-NO-0604S-0103

PATIENT
  Sex: Female
  Weight: 71 kg

DRUGS (2)
  1. OMNISCAN [Suspect]
     Indication: PRODUCT USED FOR UNKNOWN INDICATION
     Route: 042
     Dates: start: 20041022, end: 20041022
  2. OMNISCAN [Suspect]
     Route: 042
     Dates: start: 20050511, end: 20050511

REACTIONS (9)
  - MUSCULOSKELETAL PAIN [None]
  - MYALGIA [None]
  - PAIN IN EXTREMITY [None]
  - MOBILITY DECREASED [None]
  - SENSORY DISTURBANCE [None]
  - NEPHROGENIC SYSTEMIC FIBROSIS [None]
  - ARTHRALGIA [None]
  - PRURITUS [None]
  - SKIN TIGHTNESS [None]
